FAERS Safety Report 5947285-8 (Version None)
Quarter: 2008Q4

REPORT INFORMATION
  Report Type: 
  Country: None (occurrence: None)
  Receive Date: 20081110
  Receipt Date: 20081105
  Transmission Date: 20090506
  Serious: Yes (Hospitalization)
  Sender: FDA-Public Use
  Company Number: US-ROXANE LABORATORIES, INC.-2008-RO-00075RO

PATIENT
  Sex: Male
  Weight: 68 kg

DRUGS (9)
  1. LITHIUM CARBONATE [Suspect]
     Indication: SCHIZOPHRENIA
     Dosage: 450MG
     Dates: end: 20080922
  2. LITHIUM CARBONATE [Suspect]
     Indication: BIPOLAR DISORDER
  3. DILANTIN [Concomitant]
     Indication: CONVULSION
     Dosage: 200MG
  4. THIOTHIXINE [Concomitant]
     Indication: SCHIZOPHRENIA
     Dosage: 100MG
  5. UROXATRAL [Concomitant]
     Dosage: 10MG
  6. COGENTIN [Concomitant]
     Dosage: 4MG
  7. MIRALAX [Concomitant]
     Dosage: 17G
     Route: 048
  8. PRILOSEC [Concomitant]
     Dosage: 20MG
  9. MVD [Concomitant]

REACTIONS (4)
  - FALL [None]
  - MENTAL IMPAIRMENT [None]
  - THERAPEUTIC AGENT TOXICITY [None]
  - UNRESPONSIVE TO STIMULI [None]
